FAERS Safety Report 7132803-7 (Version None)
Quarter: 2010Q4

REPORT INFORMATION
  Report Type: 
  Country: None (occurrence: None)
  Receive Date: 20101202
  Receipt Date: 20101126
  Transmission Date: 20110411
  Serious: No
  Sender: FDA-Public Use
  Company Number: US-PFIZER INC-2010123493

PATIENT
  Sex: Female
  Weight: 102.96 kg

DRUGS (6)
  1. TOVIAZ [Suspect]
     Indication: URINARY INCONTINENCE
     Dosage: 4 MG, DAILY
     Route: 048
     Dates: start: 20100831, end: 20100927
  2. TOVIAZ [Suspect]
     Dosage: 8 MG, UNK
     Route: 048
     Dates: start: 20100927, end: 20101006
  3. CELEBREX [Concomitant]
     Indication: ARTHRITIS
     Dosage: 200 MG, 1X/DAY
     Route: 048
  4. NEURONTIN [Concomitant]
     Indication: BACK PAIN
     Dosage: 200 MG, 4X/DAY
     Route: 048
  5. RESTORIL [Concomitant]
     Indication: SLEEP DISORDER
     Dosage: 30 MG, 1X/DAY
     Route: 048
  6. LIOTHYRONINE SODIUM [Concomitant]
     Indication: HYPOTHYROIDISM
     Dosage: UNK

REACTIONS (5)
  - DRY MOUTH [None]
  - DRY SKIN [None]
  - DRY THROAT [None]
  - DYSPHONIA [None]
  - VOCAL CORD DISORDER [None]
